FAERS Safety Report 7167235-9 (Version None)
Quarter: 2010Q4

REPORT INFORMATION
  Report Type: 
  Country: None (occurrence: None)
  Receive Date: 20101216
  Receipt Date: 20101019
  Transmission Date: 20110411
  Serious: Yes (Hospitalization, Other)
  Sender: FDA-Public Use
  Company Number: JP-PFIZER INC-JP-WYE-H18258510

PATIENT
  Age: 12 Year
  Sex: Female
  Weight: 31 kg

DRUGS (3)
  1. DOXORUBICIN HCL [Suspect]
     Indication: BONE SARCOMA
     Dosage: 30 MG/M2
     Route: 042
     Dates: start: 20101004
  2. METHOTREXATE SODIUM [Suspect]
     Indication: BONE SARCOMA
     Dosage: 13 G, 1X/DAY
     Route: 042
     Dates: start: 20101005, end: 20101005
  3. CISPLATIN [Suspect]
     Indication: BONE SARCOMA
     Dosage: 120 MG/M2
     Route: 042
     Dates: start: 20101004

REACTIONS (11)
  - ALANINE AMINOTRANSFERASE INCREASED [None]
  - ASPARTATE AMINOTRANSFERASE INCREASED [None]
  - BLOOD ALKALINE PHOSPHATASE INCREASED [None]
  - BLOOD BILIRUBIN INCREASED [None]
  - DECREASED APPETITE [None]
  - EPISTAXIS [None]
  - HAEMOPTYSIS [None]
  - HEPATIC FUNCTION ABNORMAL [None]
  - MALAISE [None]
  - NAUSEA [None]
  - STOMATITIS [None]
